FAERS Safety Report 6967280-X (Version None)
Quarter: 2010Q3

REPORT INFORMATION
  Report Type: 
  Country: None (occurrence: None)
  Receive Date: 20100907
  Receipt Date: 20100825
  Transmission Date: 20110219
  Serious: No
  Sender: FDA-Public Use
  Company Number: US-JNJFOC-20100900389

PATIENT
  Sex: Female
  Weight: 63.5 kg

DRUGS (4)
  1. FENTANYL CITRATE [Suspect]
     Indication: BACK PAIN
     Route: 062
  2. FENTANYL CITRATE [Suspect]
     Route: 062
  3. DURAGESIC-100 [Suspect]
     Indication: PRODUCT USED FOR UNKNOWN INDICATION
     Route: 062
  4. ESTRADIOL [Concomitant]
     Indication: BLOOD CALCIUM INCREASED
     Route: 048

REACTIONS (4)
  - ANXIETY [None]
  - DRUG ADMINISTERED AT INAPPROPRIATE SITE [None]
  - NEURALGIA [None]
  - THERAPEUTIC RESPONSE DECREASED [None]
